FAERS Safety Report 8043200-4 (Version None)
Quarter: 2012Q1

REPORT INFORMATION
  Report Type: 
  Country: None (occurrence: None)
  Receive Date: 20120112
  Receipt Date: 20120109
  Transmission Date: 20120608
  Serious: Yes (Hospitalization, Other)
  Sender: FDA-Public Use
  Company Number: US-ABBOTT-11P-163-0710469-00

PATIENT
  Sex: Male
  Weight: 98.064 kg

DRUGS (5)
  1. LORTAB [Concomitant]
     Indication: ARTHRALGIA
  2. WARFARIN SODIUM [Concomitant]
     Indication: PRODUCT USED FOR UNKNOWN INDICATION
     Dosage: 5 MG DAILY
  3. METHOTREXATE [Concomitant]
     Indication: PRODUCT USED FOR UNKNOWN INDICATION
     Dates: start: 20070601, end: 20090910
  4. LORAZEPAM [Concomitant]
     Indication: PRODUCT USED FOR UNKNOWN INDICATION
  5. HUMIRA [Suspect]
     Indication: PSORIATIC ARTHROPATHY
     Dates: start: 20080101, end: 20110131

REACTIONS (11)
  - NEOPLASM MALIGNANT [None]
  - RENAL CELL CARCINOMA [None]
  - BONE NEOPLASM [None]
  - PSORIASIS [None]
  - PROSTATE CANCER [None]
  - METASTASES TO BONE [None]
  - LUNG NEOPLASM MALIGNANT [None]
  - BONE NEOPLASM MALIGNANT [None]
  - PROSTATOMEGALY [None]
  - METASTATIC PAIN [None]
  - DEEP VEIN THROMBOSIS [None]
